FAERS Safety Report 8949798 (Version 1)
Quarter: 2012Q4

REPORT INFORMATION
  Report Type: Report from Study
  Country: FR (occurrence: FR)
  Receive Date: 20121206
  Receipt Date: 20121206
  Transmission Date: 20130627
  Serious: Yes (Hospitalization)
  Sender: FDA-Public Use
  Company Number: FR-ROCHE-1161474

PATIENT
  Age: 60 Year
  Sex: Male
  Weight: 68 kg

DRUGS (15)
  1. RITUXIMAB [Suspect]
     Indication: MANTLE CELL LYMPHOMA
     Dosage: 640 mg/cycle
     Route: 041
     Dates: start: 20120404
  2. RITUXIMAB [Interacting]
     Route: 041
     Dates: start: 20120426
  3. DEXAMETHASONE [Interacting]
     Indication: MANTLE CELL LYMPHOMA
     Route: 048
     Dates: start: 20120404
  4. DEXAMETHASONE [Interacting]
     Route: 048
     Dates: start: 20120426
  5. CISPLATIN [Interacting]
     Indication: MANTLE CELL LYMPHOMA
     Route: 042
     Dates: start: 20120404
  6. CISPLATIN [Interacting]
     Route: 042
  7. UNSPECIFIED INGREDIENT [Interacting]
     Indication: PRODUCT USED FOR UNKNOWN INDICATION
     Route: 065
  8. FONDAPARINUX SODIUM [Interacting]
     Indication: PRODUCT USED FOR UNKNOWN INDICATION
     Route: 065
  9. SPECIAFOLDINE [Concomitant]
     Dosage: 5 mg 3 times a week every two days (alternating with trimethoprim; sulfamethoxazole)
     Route: 065
  10. DEPAKINE [Concomitant]
     Route: 065
  11. XANAX [Concomitant]
     Route: 065
  12. ARIXTRA [Concomitant]
     Indication: THROMBOSIS PROPHYLAXIS
     Route: 065
  13. STILNOX [Concomitant]
     Route: 065
  14. VALACICLOVIR [Concomitant]
     Route: 065
  15. BACTRIM FORTE [Concomitant]
     Dosage: 1 DF 3 times a week every 2 days (alternating with folic acid)
     Route: 065

REACTIONS (1)
  - Muscle haemorrhage [Recovered/Resolved]
